FAERS Safety Report 10710807 (Version 2)
Quarter: 2015Q1

REPORT INFORMATION
  Report Type: Spontaneous
  Country: US (occurrence: None)
  Receive Date: 20150113
  Receipt Date: 20150129
  Transmission Date: 20150721
  Serious: Yes (Other)
  Sender: FDA-Public Use
  Company Number: 2015-US-000128

PATIENT
  Sex: Male

DRUGS (2)
  1. XYREM [Suspect]
     Active Substance: SODIUM OXYBATE
     Indication: NARCOLEPSY
     Route: 048
     Dates: start: 201411
  2. XYREM [Suspect]
     Active Substance: SODIUM OXYBATE
     Indication: CATAPLEXY
     Route: 048
     Dates: start: 201411

REACTIONS (4)
  - Accident at home [None]
  - Accident [None]
  - Burns third degree [None]
  - Burns second degree [None]
